FAERS Safety Report 21850711 (Version 2)
Quarter: 2023Q1

REPORT INFORMATION
  Report Type: Report from Study
  Country: CN (occurrence: CN)
  Receive Date: 20230111
  Receipt Date: 20230118
  Transmission Date: 20230417
  Serious: Yes (Hospitalization)
  Sender: FDA-Public Use
  Company Number: CN-JNJFOC-20221232718

PATIENT
  Age: 59 Year
  Sex: Male
  Weight: 56 kg

DRUGS (10)
  1. AMIVANTAMAB [Suspect]
     Active Substance: AMIVANTAMAB
     Indication: Non-small cell lung cancer
     Route: 042
     Dates: start: 20201127
  2. AMIVANTAMAB [Suspect]
     Active Substance: AMIVANTAMAB
     Dosage: CYCLE 27 DAY 15?MEDICAL KIT NUMBER: 303772, 303773, 303774
     Route: 042
     Dates: start: 20221213, end: 20221213
  3. MINERALS\VITAMINS [Concomitant]
     Active Substance: MINERALS\VITAMINS
     Indication: Prophylaxis
     Route: 048
     Dates: start: 20200503
  4. CALCIUM CARBONATE\CHOLECALCIFEROL [Concomitant]
     Active Substance: CALCIUM CARBONATE\CHOLECALCIFEROL
     Indication: Mineral supplementation
     Route: 048
     Dates: start: 20210308
  5. BETAMETHASONE [Concomitant]
     Active Substance: BETAMETHASONE
     Indication: Seborrhoeic dermatitis
     Dosage: DOSE: MODERATION
     Route: 061
     Dates: start: 20220527
  6. CLINDAMYCIN HYDROCHLORIDE [Concomitant]
     Active Substance: CLINDAMYCIN HYDROCHLORIDE
     Indication: Seborrhoeic dermatitis
     Dosage: DOSE: MODERATION
     Route: 061
     Dates: start: 20220529
  7. MUPIROCIN [Concomitant]
     Active Substance: MUPIROCIN
     Indication: Seborrhoeic dermatitis
     Dosage: DOSE: MODERATION
     Route: 061
     Dates: start: 20210624
  8. MUPIROCIN [Concomitant]
     Active Substance: MUPIROCIN
     Indication: Paronychia
     Dosage: DOSE: MODERATION
     Route: 061
     Dates: start: 20220809
  9. VITAMIN E [Concomitant]
     Active Substance: .ALPHA.-TOCOPHEROL
     Indication: Paronychia
     Dosage: DOSE: MODERATION
     Route: 061
     Dates: start: 20220809
  10. MANNITOL [Concomitant]
     Active Substance: MANNITOL
     Indication: Prophylaxis
     Route: 042
     Dates: start: 20221204, end: 20221204

REACTIONS (1)
  - Type I hypersensitivity [Recovered/Resolved]

NARRATIVE: CASE EVENT DATE: 20221213
